FAERS Safety Report 4895867-7 (Version None)
Quarter: 2006Q1

REPORT INFORMATION
  Report Type: 
  Country: None (occurrence: None)
  Receive Date: 20060125
  Receipt Date: 20040122
  Transmission Date: 20060701
  Serious: Yes (Hospitalization)
  Sender: FDA-Public Use
  Company Number: FR_040103407

PATIENT
  Age: 4 Year
  Sex: Female
  Weight: 10 kg

DRUGS (23)
  1. VANCOMYCIN [Suspect]
     Dates: start: 29931029, end: 20031105
  2. ALDACTONE [Concomitant]
  3. FUROSEMIDE [Concomitant]
  4. GENTAMICIN [Concomitant]
  5. MORPHINE [Concomitant]
  6. ACETAMINOPHEN [Concomitant]
  7. NUBAIN [Concomitant]
  8. DIGOXIN [Concomitant]
  9. ACETAMINOPHEN [Concomitant]
  10. CODEINE PHOSPHATE [Concomitant]
  11. KAYEXALATE [Concomitant]
  12. ROCEPHIN [Concomitant]
  13. CLAFORAN [Concomitant]
  14. NORCURON [Concomitant]
  15. OMEPRAZOLE [Concomitant]
  16. COROTROPE [Concomitant]
  17. ADRENALINE [Concomitant]
  18. FENTANYL [Concomitant]
  19. NARCOZEP (FLUNITRAZEPAM) [Concomitant]
  20. ASPEGIC 1000 [Concomitant]
  21. ALFA-1 PROTEINASE INHIBITOR [Concomitant]
  22. CALCIDIA(CALCIUM CARBONATE) [Concomitant]
  23. VITAMIN K [Concomitant]

REACTIONS (2)
  - BONE MARROW FAILURE [None]
  - EPISTAXIS [None]
